FAERS Safety Report 9410675 (Version 1)
Quarter: 2013Q2

REPORT INFORMATION
  Report Type: Spontaneous
  Country: US (occurrence: US)
  Receive Date: 20130424
  Receipt Date: 20130424
  Transmission Date: 20140414
  Serious: Yes (Life-Threatening, Hospitalization, Other)
  Sender: FDA-Public Use
  Company Number: 2013P1004826

PATIENT
  Age: 54 Year
  Sex: Female

DRUGS (4)
  1. INFUMORPH [Suspect]
     Indication: PAIN
  2. INFUMORPH [Suspect]
     Indication: BACK PAIN
  3. BUPIVACAINE [Suspect]
     Indication: PAIN
  4. BUPIVACAINE [Suspect]
     Indication: BACK PAIN

REACTIONS (7)
  - Hypoaesthesia [None]
  - Quadriplegia [None]
  - Respiratory arrest [None]
  - Convulsion [None]
  - Implant site effusion [None]
  - Puncture site discharge [None]
  - Incorrect dose administered by device [None]
